FAERS Safety Report 4370937-0 (Version None)
Quarter: 2004Q2

REPORT INFORMATION
  Report Type: 
  Country: None (occurrence: None)
  Receive Date: 20040601
  Receipt Date: 20040514
  Transmission Date: 20050107
  Serious: Yes (Hospitalization)
  Sender: FDA-Public Use
  Company Number: 237019

PATIENT
  Age: 64 Year
  Sex: Female

DRUGS (4)
  1. ACTIVELLE [Suspect]
     Indication: HORMONE REPLACEMENT THERAPY
     Dosage: SEE IMAGE
     Dates: start: 20030401, end: 20030801
  2. ACTIVELLE [Suspect]
     Indication: HORMONE REPLACEMENT THERAPY
     Dosage: SEE IMAGE
     Dates: start: 20030801, end: 20040301
  3. CYNT ^BEIERSDORF^ (MOXONIDINE) [Concomitant]
  4. LOSARTAN (LOSARTAN) [Concomitant]

REACTIONS (14)
  - ARRHYTHMIA [None]
  - ATHEROSCLEROSIS [None]
  - BUNDLE BRANCH BLOCK LEFT [None]
  - CAROTID ARTERY STENOSIS [None]
  - CEREBELLAR INFARCTION [None]
  - CEREBRAL ISCHAEMIA [None]
  - HEMIPARESIS [None]
  - LACUNAR INFARCTION [None]
  - MICROANGIOPATHY [None]
  - MUSCLE SPASMS [None]
  - NYSTAGMUS [None]
  - TREMOR [None]
  - VERTEBRAL ARTERY OCCLUSION [None]
  - VIITH NERVE PARALYSIS [None]
